FAERS Safety Report 10577516 (Version 4)
Quarter: 2015Q3

REPORT INFORMATION
  Report Type: Spontaneous
  Country: GB (occurrence: GB)
  Receive Date: 20141111
  Receipt Date: 20150921
  Transmission Date: 20151125
  Serious: Yes (Hospitalization, Other)
  Sender: FDA-Public Use
  Company Number: GB-TEVA-520878ISR

PATIENT
  Age: 30 Year
  Sex: Male
  Weight: 150 kg

DRUGS (10)
  1. CLOZARIL [Suspect]
     Active Substance: CLOZAPINE
     Indication: SCHIZOPHRENIA
     Dosage: 700 MILLIGRAM DAILY; 700 MG, DAILY
     Route: 048
     Dates: start: 20061012
  2. CLOZARIL [Suspect]
     Active Substance: CLOZAPINE
     Dosage: 700 MILLIGRAM DAILY; 700 MG, PER DAY
     Route: 048
  3. BENZHEXOL [Concomitant]
     Active Substance: TRIHEXYPHENIDYL
     Indication: PRODUCT USED FOR UNKNOWN INDICATION
     Dosage: 6 MILLIGRAM DAILY; 4 MG, AND 2 MG
     Route: 048
  4. ARIPIPRAZOLE. [Suspect]
     Active Substance: ARIPIPRAZOLE
     Indication: PSYCHOTIC DISORDER
     Dosage: 10 MILLIGRAM DAILY; 10 MG, DAILY
     Route: 048
  5. LANSOPRAZOLE. [Concomitant]
     Active Substance: LANSOPRAZOLE
     Indication: PRODUCT USED FOR UNKNOWN INDICATION
     Dosage: 30 MILLIGRAM DAILY; 30 MG, DAILY
     Route: 048
  6. SEMISODIUM VALPROATE [Concomitant]
     Active Substance: DIVALPROEX SODIUM
     Indication: AFFECTIVE DISORDER
     Dosage: 4000 MILLIGRAM DAILY; 4000 MG, DAILY
     Route: 048
  7. ATORVASTATIN [Suspect]
     Active Substance: ATORVASTATIN
     Indication: PRODUCT USED FOR UNKNOWN INDICATION
     Dosage: 10 MILLIGRAM DAILY; 10 MG, DAILY
     Route: 048
  8. CLOZARIL [Suspect]
     Active Substance: CLOZAPINE
     Indication: SCHIZOAFFECTIVE DISORDER
     Dosage: 900 MILLIGRAM DAILY; 900 MG, PER DAY
     Route: 048
  9. LEVOTHYROXINE. [Suspect]
     Active Substance: LEVOTHYROXINE
     Indication: THYROID DISORDER
     Dosage: 75 MILLIGRAM DAILY; 75 MG, DAILY
     Route: 048
  10. FYBOGEL [Concomitant]
     Active Substance: PLANTAGO OVATA SEED
     Indication: CONSTIPATION
     Dosage: UNK
     Route: 048

REACTIONS (13)
  - Conjunctivitis [Recovered/Resolved]
  - Neutrophil count increased [Unknown]
  - Pharyngitis [Recovered/Resolved]
  - Herpes simplex [Recovered/Resolved]
  - Stomatitis [Recovered/Resolved]
  - Oral candidiasis [Recovered/Resolved]
  - Rash generalised [Recovered/Resolved]
  - White blood cell count increased [Unknown]
  - Laryngitis [Unknown]
  - Blister [Recovered/Resolved]
  - Alanine aminotransferase increased [Recovered/Resolved]
  - Tonsillitis [Recovered/Resolved]
  - Oropharyngeal pain [Recovered/Resolved]

NARRATIVE: CASE EVENT DATE: 20140710
